FAERS Safety Report 9832555 (Version 2)
Quarter: 2014Q3

REPORT INFORMATION
  Report Type: Spontaneous
  Country: US (occurrence: US)
  Receive Date: 20140121
  Receipt Date: 20140814
  Transmission Date: 20150326
  Serious: Yes (Death, Hospitalization, Other)
  Sender: FDA-Public Use
  Company Number: US-009507513-1401USA009347

PATIENT
  Sex: Female
  Weight: 113.83 kg

DRUGS (1)
  1. NUVARING [Suspect]
     Active Substance: ETHINYL ESTRADIOL\ETONOGESTREL
     Dosage: INSERT X3 WKS
     Route: 067
     Dates: start: 20110725

REACTIONS (20)
  - Convulsion [Recovered/Resolved]
  - Carotid artery occlusion [Unknown]
  - Hereditary angioedema [Recovered/Resolved]
  - Hereditary angioedema [Recovered/Resolved]
  - Urinary tract infection [Recovered/Resolved]
  - Syncope [Recovered/Resolved]
  - Cardiac arrest [Fatal]
  - Pulmonary embolism [Fatal]
  - Hypotension [Recovered/Resolved]
  - Musculoskeletal discomfort [Unknown]
  - Adjustment disorder [Unknown]
  - Oedema peripheral [Unknown]
  - Craniectomy [Unknown]
  - Bundle branch block right [Unknown]
  - Gastrooesophageal reflux disease [Unknown]
  - Venous occlusion [Unknown]
  - Cervicobrachial syndrome [Recovered/Resolved]
  - Lobar pneumonia [Unknown]
  - Cerebrovascular accident [Unknown]
  - Insomnia [Unknown]

NARRATIVE: CASE EVENT DATE: 20110924
